FAERS Safety Report 5979884-1 (Version None)
Quarter: 2008Q4

REPORT INFORMATION
  Report Type: 
  Country: None (occurrence: None)
  Receive Date: 20081205
  Receipt Date: 20081125
  Transmission Date: 20090506
  Serious: Yes (Death)
  Sender: FDA-Public Use
  Company Number: US-BIOGENIDEC-2008BI029108

PATIENT
  Sex: Male

DRUGS (1)
  1. TYSABRI [Suspect]
     Indication: MULTIPLE SCLEROSIS
     Route: 042
     Dates: start: 20070420, end: 20080827

REACTIONS (4)
  - MALNUTRITION [None]
  - PANCREATIC CARCINOMA [None]
  - POST GASTRIC SURGERY SYNDROME [None]
  - PSEUDOMONAL SEPSIS [None]
